FAERS Safety Report 25721946 (Version 1)
Quarter: 2025Q3

REPORT INFORMATION
  Report Type: Report from Study
  Country: US (occurrence: US)
  Receive Date: 20250825
  Receipt Date: 20250825
  Transmission Date: 20251020
  Serious: Yes (Other)
  Sender: ABBVIE
  Company Number: US-ABBVIE-6429698

PATIENT
  Sex: Female

DRUGS (2)
  1. EMRELIS [Suspect]
     Active Substance: TELISOTUZUMAB VEDOTIN-TLLV
     Indication: Pancreatic carcinoma
     Route: 042
  2. EMRELIS [Suspect]
     Active Substance: TELISOTUZUMAB VEDOTIN-TLLV
     Indication: Pancreatic carcinoma
     Route: 042

REACTIONS (1)
  - Pancreatic carcinoma [Not Recovered/Not Resolved]
